FAERS Safety Report 13669569 (Version 1)
Quarter: 2017Q2

REPORT INFORMATION
  Report Type: Report from Study
  Country: GB (occurrence: GB)
  Receive Date: 20170620
  Receipt Date: 20170620
  Transmission Date: 20170830
  Serious: Yes (Other)
  Sender: FDA-Public Use
  Company Number: GB-AMGEN-GBRSL2017065617

PATIENT
  Age: 70 Year
  Sex: Female

DRUGS (9)
  1. CETIRIZINE [Concomitant]
     Active Substance: CETIRIZINE HYDROCHLORIDE
  2. OMEPRAZOLE. [Concomitant]
     Active Substance: OMEPRAZOLE
  3. REPATHA [Suspect]
     Active Substance: EVOLOCUMAB
     Indication: BLOOD CHOLESTEROL INCREASED
     Dosage: Q2WK
     Route: 058
     Dates: start: 20170328, end: 20170428
  4. BISOPROLOL [Concomitant]
     Active Substance: BISOPROLOL
  5. REPATHA [Suspect]
     Active Substance: EVOLOCUMAB
     Indication: TYPE IIA HYPERLIPIDAEMIA
  6. RAMIPRIL. [Concomitant]
     Active Substance: RAMIPRIL
  7. CLOPIDOGREL [Concomitant]
     Active Substance: CLOPIDOGREL BISULFATE
  8. CARMIL [Concomitant]
  9. ASPIRIN. [Concomitant]
     Active Substance: ASPIRIN

REACTIONS (7)
  - Joint swelling [Recovered/Resolved]
  - Discomfort [Recovered/Resolved]
  - Abasia [Recovered/Resolved]
  - Weight bearing difficulty [Recovered/Resolved]
  - Myalgia [Recovered/Resolved]
  - Peripheral coldness [Recovered/Resolved]
  - Arthralgia [Recovered/Resolved]

NARRATIVE: CASE EVENT DATE: 20170411
